FAERS Safety Report 15231125 (Version 8)
Quarter: 2020Q4

REPORT INFORMATION
  Report Type: Other
  Country: CA (occurrence: CA)
  Receive Date: 20180802
  Receipt Date: 20201203
  Transmission Date: 20210113
  Serious: Yes (Other)
  Sender: FDA-Public Use
  Company Number: CA-ROCHE-2132482

PATIENT
  Age: 31 Year
  Sex: Female

DRUGS (20)
  1. CELEBREX [Concomitant]
     Active Substance: CELECOXIB
  2. TYLENOL [Concomitant]
     Active Substance: ACETAMINOPHEN
  3. EZETIMIBE. [Concomitant]
     Active Substance: EZETIMIBE
  4. NOVORAPID [Concomitant]
     Active Substance: INSULIN ASPART
  5. TYLENOL [Concomitant]
     Active Substance: ACETAMINOPHEN
  6. ISMN [Concomitant]
     Active Substance: ISOSORBIDE MONONITRATE
  7. NADOLOL. [Concomitant]
     Active Substance: NADOLOL
     Dates: start: 201903
  8. ATORVASTATIN [Concomitant]
     Active Substance: ATORVASTATIN
  9. TRESIBA [Concomitant]
     Active Substance: INSULIN DEGLUDEC
  10. VICTOZA [Concomitant]
     Active Substance: LIRAGLUTIDE
     Dates: start: 201910
  11. OCREVUS [Suspect]
     Active Substance: OCRELIZUMAB
     Indication: RELAPSING-REMITTING MULTIPLE SCLEROSIS
     Dosage: 300 MG DAY 0, DAY 14 THEN 600 MG Q6M. ;ONGOING: YES
     Route: 042
     Dates: start: 20180525
  12. DEXILANT [Concomitant]
     Active Substance: DEXLANSOPRAZOLE
  13. TOPAMAX [Concomitant]
     Active Substance: TOPIRAMATE
  14. AVENTYL [Concomitant]
     Active Substance: NORTRIPTYLINE HYDROCHLORIDE
  15. SOLU-MEDROL [Suspect]
     Active Substance: METHYLPREDNISOLONE SODIUM SUCCINATE
     Indication: PREMEDICATION
     Route: 065
  16. RAMIPRIL. [Concomitant]
     Active Substance: RAMIPRIL
  17. REACTINE (CANADA) [Concomitant]
     Active Substance: CETIRIZINE HYDROCHLORIDE
  18. TIAZAC (CANADA) [Concomitant]
  19. ASA [Concomitant]
     Active Substance: ASPIRIN
  20. SYNTHROID [Concomitant]
     Active Substance: LEVOTHYROXINE SODIUM

REACTIONS (9)
  - Hyperglycaemia [Recovered/Resolved]
  - Tendonitis [Recovering/Resolving]
  - Abscess limb [Recovering/Resolving]
  - Tooth abscess [Recovered/Resolved]
  - Urinary tract infection [Recovered/Resolved]
  - Periarthritis [Recovering/Resolving]
  - Abscess limb [Not Recovered/Not Resolved]
  - Mouth ulceration [Recovered/Resolved]
  - Vaginal infection [Recovering/Resolving]

NARRATIVE: CASE EVENT DATE: 20180525
